FAERS Safety Report 7771449-4 (Version None)
Quarter: 2011Q3

REPORT INFORMATION
  Report Type: 
  Country: None (occurrence: None)
  Receive Date: 20110922
  Receipt Date: 20110422
  Transmission Date: 20111222
  Serious: Yes (Other)
  Sender: FDA-Public Use
  Company Number: US-ASTRAZENECA-2010SE37379

PATIENT
  Age: 63 Year
  Sex: Female
  Weight: 84.8 kg

DRUGS (2)
  1. LITHIUM [Concomitant]
  2. SEROQUEL [Suspect]
     Indication: DISABILITY
     Route: 048
     Dates: start: 20080301, end: 20100401

REACTIONS (3)
  - SUICIDAL IDEATION [None]
  - FOOT FRACTURE [None]
  - LIVER DISORDER [None]
